FAERS Safety Report 8537377-1 (Version None)
Quarter: 2012Q3

REPORT INFORMATION
  Report Type: 
  Country: None (occurrence: None)
  Receive Date: 20120725
  Receipt Date: 20120718
  Transmission Date: 20120928
  Serious: Yes (Hospitalization, Other)
  Sender: FDA-Public Use
  Company Number: JP-ROCHE-599811

PATIENT
  Sex: Female
  Weight: 65 kg

DRUGS (12)
  1. RISEDRONATE SODIUM [Concomitant]
     Route: 048
  2. RHEUMATREX [Concomitant]
     Dosage: DIVIDED INTO THREE DOSES.
     Route: 048
  3. THEO-DUR [Concomitant]
     Dosage: FORM: PERORAL AGENT
     Route: 048
  4. VOLTAREN [Concomitant]
     Dosage: FORM: RECTAL SUPPOSITORY.
     Route: 054
  5. PREDNISOLONE AND PREDNISOLONE ACETATE AND PREDNISOLONE SODIUM SUCCINAT [Suspect]
     Indication: RHEUMATOID ARTHRITIS
     Route: 048
     Dates: end: 20081214
  6. LANSOPRAZOLE [Suspect]
     Indication: GASTRITIS PROPHYLAXIS
     Route: 048
     Dates: end: 20081214
  7. ACETAMINOPHEN [Suspect]
     Indication: PRODUCT USED FOR UNKNOWN INDICATION
     Dosage: FORM:PERORAL AGENT
     Route: 048
  8. ISONIAZID [Concomitant]
     Dosage: FORM: ORAL FORMULATION (NOT OTHERWISE SPECIFIED)
     Route: 048
  9. RISEDRONATE SODIUM [Concomitant]
     Route: 048
  10. ACTEMRA [Suspect]
     Indication: RHEUMATOID ARTHRITIS
     Route: 042
     Dates: start: 20080630, end: 20080630
  11. HOKUNALIN [Concomitant]
     Dosage: FORM: TAPE.
     Route: 062
  12. DEPAS [Concomitant]
     Dosage: FORM: PERORAL AGENT
     Route: 048

REACTIONS (4)
  - LOWER GASTROINTESTINAL HAEMORRHAGE [None]
  - BRONCHITIS [None]
  - ANAEMIA [None]
  - ORAL HERPES [None]
